FAERS Safety Report 13042302 (Version 1)
Quarter: 2016Q4

REPORT INFORMATION
  Report Type: Report from Study
  Country: US (occurrence: US)
  Receive Date: 20161219
  Receipt Date: 20161219
  Transmission Date: 20170207
  Serious: Yes (Hospitalization, Other)
  Sender: FDA-Public Use
  Company Number: US-UCBSA-2016032275

PATIENT
  Sex: Female

DRUGS (4)
  1. LEVETIRACETAM. [Suspect]
     Active Substance: LEVETIRACETAM
     Indication: PRODUCT USED FOR UNKNOWN INDICATION
     Dosage: UNK
  2. ONFI [Concomitant]
     Active Substance: CLOBAZAM
     Indication: PRODUCT USED FOR UNKNOWN INDICATION
     Dosage: 2 ML, 2X/DAY (BID)
  3. ONFI [Concomitant]
     Active Substance: CLOBAZAM
     Dosage: WEAN OFF
  4. ONFI [Concomitant]
     Active Substance: CLOBAZAM
     Dosage: 1.6 ML, 2X/DAY (BID)

REACTIONS (5)
  - Drug ineffective [Unknown]
  - Myoclonic epilepsy [Unknown]
  - Hospitalisation [Unknown]
  - Abnormal behaviour [Unknown]
  - Seizure [Unknown]
